FAERS Safety Report 4570609-3 (Version None)
Quarter: 2005Q1

REPORT INFORMATION
  Report Type: 
  Country: None (occurrence: None)
  Receive Date: 20050204
  Receipt Date: 20050124
  Transmission Date: 20050727
  Serious: Yes (Other)
  Sender: FDA-Public Use
  Company Number: GB-GLAXOSMITHKLINE-B0365877A

PATIENT
  Sex: Male

DRUGS (2)
  1. SEROXAT [Suspect]
  2. ZOPICLONE [Concomitant]
     Route: 065

REACTIONS (3)
  - AGGRESSION [None]
  - DRUG INTERACTION [None]
  - SLEEP WALKING [None]
